FAERS Safety Report 25751252 (Version 2)
Quarter: 2025Q3

REPORT INFORMATION
  Report Type: Spontaneous
  Country: EU (occurrence: EU)
  Receive Date: 20250902
  Receipt Date: 20250908
  Transmission Date: 20251021
  Serious: No
  Sender: DAIICHI
  Company Number: EU-DSJP-DS-2025-162057-FR

PATIENT
  Sex: Male

DRUGS (1)
  1. ENHERTU [Suspect]
     Active Substance: FAM-TRASTUZUMAB DERUXTECAN-NXKI
     Indication: Gastric cancer
     Route: 042
     Dates: start: 20250821, end: 20250821

REACTIONS (1)
  - No adverse event [Unknown]
